FAERS Safety Report 6269645-0 (Version None)
Quarter: 2009Q3

REPORT INFORMATION
  Report Type: 
  Country: None (occurrence: None)
  Receive Date: 20090714
  Receipt Date: 20090709
  Transmission Date: 20100115
  Serious: Yes (Death, Other)
  Sender: FDA-Public Use
  Company Number: 2009008332

PATIENT
  Sex: Male

DRUGS (1)
  1. NUVIGIL [Suspect]
     Dosage: (150 MG), ORAL
     Route: 048
     Dates: end: 20090101

REACTIONS (1)
  - SELF-INJURIOUS IDEATION [None]
